FAERS Safety Report 24531688 (Version 1)
Quarter: 2024Q4

REPORT INFORMATION
  Report Type: Report from Study
  Country: MX (occurrence: MX)
  Receive Date: 20241022
  Receipt Date: 20241022
  Transmission Date: 20250115
  Serious: No
  Sender: ROCHE
  Company Number: MX-ROCHE-3520257

PATIENT
  Age: 37 Year
  Sex: Female
  Weight: 55.0 kg

DRUGS (1)
  1. PULMOZYME [Suspect]
     Active Substance: DORNASE ALFA
     Indication: Cystic fibrosis
     Route: 055
     Dates: start: 20060315

REACTIONS (16)
  - Type 2 diabetes mellitus [Unknown]
  - Blood glucose decreased [Unknown]
  - Pancreatic disorder [Unknown]
  - Weight decreased [Recovering/Resolving]
  - Weight gain poor [Recovering/Resolving]
  - Disease progression [Unknown]
  - Suspected COVID-19 [Unknown]
  - Pneumonia [Unknown]
  - Immunosuppression [Unknown]
  - Cystic fibrosis gastrointestinal disease [Unknown]
  - Obstruction [Unknown]
  - Infective pulmonary exacerbation of cystic fibrosis [Unknown]
  - Cystic fibrosis [Recovering/Resolving]
  - Cross infection [Unknown]
  - Dehydration [Unknown]
  - Total lung capacity decreased [Unknown]

NARRATIVE: CASE EVENT DATE: 20220101
